FAERS Safety Report 11575009 (Version 1)
Quarter: 2015Q3

REPORT INFORMATION
  Report Type: Spontaneous
  Country: US (occurrence: US)
  Receive Date: 20150930
  Receipt Date: 20150930
  Transmission Date: 20151125
  Serious: Yes (Other)
  Sender: FDA-Public Use
  Company Number: US-ASTRAZENECA-2015SE93081

PATIENT
  Age: 60 Year
  Sex: Male

DRUGS (5)
  1. CRESTOR [Suspect]
     Active Substance: ROSUVASTATIN CALCIUM
     Route: 048
     Dates: start: 2010, end: 2015
  2. HERBAL NOS [Suspect]
     Active Substance: HERBALS
     Route: 048
     Dates: start: 20150831, end: 20150831
  3. HERBAL NOS [Suspect]
     Active Substance: HERBALS
     Route: 048
     Dates: start: 20150828, end: 20150828
  4. HERBAL NOS [Suspect]
     Active Substance: HERBALS
     Dosage: ONCE/SINGLE ADMINISTRATION
     Route: 048
     Dates: start: 20150822, end: 20150822
  5. HERBAL NOS [Suspect]
     Active Substance: HERBALS
     Route: 048
     Dates: start: 20150826, end: 20150826

REACTIONS (4)
  - Liver function test abnormal [Recovered/Resolved]
  - Asthenia [Not Recovered/Not Resolved]
  - Hypersensitivity [Recovered/Resolved with Sequelae]
  - Urticaria [Recovered/Resolved]

NARRATIVE: CASE EVENT DATE: 20150822
